FAERS Safety Report 6027083-X (Version None)
Quarter: 2009Q1

REPORT INFORMATION
  Report Type: 
  Country: None (occurrence: None)
  Receive Date: 20090105
  Receipt Date: 20081219
  Transmission Date: 20090719
  Serious: Yes (Other)
  Sender: FDA-Public Use
  Company Number: JP-BAYER-200833437GPV

PATIENT
  Age: 4 Year
  Sex: Male

DRUGS (9)
  1. FLUDARABINE PHOSPHATE [Suspect]
     Indication: BONE MARROW CONDITIONING REGIMEN
     Route: 065
  2. MELPHALAN [Suspect]
     Indication: BONE MARROW CONDITIONING REGIMEN
     Route: 065
  3. CYCLOSPORINE [Concomitant]
     Indication: PROPHYLAXIS AGAINST GRAFT VERSUS HOST DISEASE
     Route: 065
  4. METHYLPREDNISOLONE 16MG TAB [Concomitant]
     Indication: PROPHYLAXIS AGAINST GRAFT VERSUS HOST DISEASE
     Route: 065
  5. ANTIFUNGALS [Concomitant]
     Indication: ANTIFUNGAL PROPHYLAXIS
     Route: 065
  6. ACYCLOVIR [Concomitant]
     Indication: ANTIVIRAL PROPHYLAXIS
     Route: 065
  7. POLYMYCIN B SULFATE [Concomitant]
     Indication: ANTIBIOTIC PROPHYLAXIS
     Route: 065
  8. IMMUNE GLOBULIN INTRAVENOUS (HUMAN) [Concomitant]
     Indication: PROPHYLAXIS
     Route: 042
  9. NEUPOGEN [Concomitant]
     Indication: PROPHYLAXIS
     Route: 065

REACTIONS (3)
  - CONVULSION [None]
  - INAPPROPRIATE ANTIDIURETIC HORMONE SECRETION [None]
  - MENINGOENCEPHALITIS HERPETIC [None]
